FAERS Safety Report 15756075 (Version 1)
Quarter: 2018Q4

REPORT INFORMATION
  Report Type: Report from Study
  Country: JP (occurrence: JP)
  Receive Date: 20181224
  Receipt Date: 20181224
  Transmission Date: 20190205
  Serious: Yes (Hospitalization)
  Sender: FDA-Public Use
  Company Number: PHJP2018JP021046

PATIENT
  Age: 17 Year
  Sex: Male
  Weight: 24 kg

DRUGS (22)
  1. ILARIS [Suspect]
     Active Substance: CANAKINUMAB
     Dosage: 48 MG, UNK
     Route: 058
     Dates: start: 20180403
  2. PROGRAF [Concomitant]
     Active Substance: TACROLIMUS\TACROLIMUS ANHYDROUS
     Indication: FAMILIAL MEDITERRANEAN FEVER
     Dosage: UNK
     Route: 048
  3. PREDNISOLONE. [Concomitant]
     Active Substance: PREDNISOLONE
     Dosage: 7 MG, UNK
     Route: 048
     Dates: start: 20180725, end: 20180807
  4. METOLATE [Concomitant]
     Active Substance: METHOTREXATE
     Indication: FAMILIAL MEDITERRANEAN FEVER
     Dosage: UNK
     Route: 048
  5. ILARIS [Suspect]
     Active Substance: CANAKINUMAB
     Dosage: 45 MG, UNK
     Route: 058
     Dates: start: 20180620
  6. COLCHICINE. [Concomitant]
     Active Substance: COLCHICINE
     Indication: FAMILIAL MEDITERRANEAN FEVER
     Dosage: 0.5 MG, UNK
     Route: 048
     Dates: start: 20170916
  7. ILARIS [Suspect]
     Active Substance: CANAKINUMAB
     Dosage: 48 MG, UNK
     Route: 058
     Dates: start: 20180501
  8. ILARIS [Suspect]
     Active Substance: CANAKINUMAB
     Dosage: 45 MG, UNK
     Route: 058
     Dates: start: 20180821
  9. ILARIS [Suspect]
     Active Substance: CANAKINUMAB
     Dosage: 45 MG, UNK
     Route: 058
     Dates: start: 20180724
  10. PREDNISOLONE. [Concomitant]
     Active Substance: PREDNISOLONE
     Dosage: 8 MG, UNK
     Route: 048
     Dates: start: 20180716, end: 20180724
  11. PREDNISOLONE. [Concomitant]
     Active Substance: PREDNISOLONE
     Dosage: 5 MG, UNK
     Route: 048
     Dates: start: 20180822
  12. PREDONINE [Concomitant]
     Active Substance: PREDNISOLONE
     Indication: FAMILIAL MEDITERRANEAN FEVER
     Dosage: UNK
     Route: 048
  13. CLARITHROMYCIN. [Concomitant]
     Active Substance: CLARITHROMYCIN
     Indication: PROPHYLAXIS
     Dosage: UNK
     Route: 048
  14. CEFOTAXIME [Concomitant]
     Active Substance: CEFOTAXIME SODIUM
     Indication: ANTIBIOTIC PROPHYLAXIS
     Dosage: UNK
     Route: 065
     Dates: end: 20180714
  15. ILARIS [Suspect]
     Active Substance: CANAKINUMAB
     Dosage: 48 MG, UNK
     Route: 058
     Dates: start: 20180529
  16. ILARIS [Suspect]
     Active Substance: CANAKINUMAB
     Dosage: 88 MG, UNK
     Route: 058
     Dates: start: 20180918
  17. PREDNISOLONE. [Concomitant]
     Active Substance: PREDNISOLONE
     Dosage: 12.5 MG, UNK
     Route: 048
  18. ILARIS [Suspect]
     Active Substance: CANAKINUMAB
     Indication: FAMILIAL MEDITERRANEAN FEVER
     Dosage: 48 MG, UNK
     Route: 058
     Dates: start: 20180305
  19. PREDNISOLONE. [Concomitant]
     Active Substance: PREDNISOLONE
     Indication: FAMILIAL MEDITERRANEAN FEVER
     Dosage: 2.9 MG, UNK
     Route: 048
  20. PREDNISOLONE. [Concomitant]
     Active Substance: PREDNISOLONE
     Dosage: 10 MG, UNK
     Route: 048
     Dates: start: 20180711, end: 20180715
  21. PREDNISOLONE. [Concomitant]
     Active Substance: PREDNISOLONE
     Dosage: 6 MG, UNK
     Route: 048
     Dates: start: 20180808, end: 20180821
  22. FERROUS CITRATE NA [Concomitant]
     Active Substance: SODIUM FERROUS CITRATE
     Indication: FAMILIAL MEDITERRANEAN FEVER
     Dosage: UNK
     Route: 048

REACTIONS (3)
  - Upper respiratory tract inflammation [Recovered/Resolved]
  - Feeding disorder [Unknown]
  - Abdominal pain [Recovered/Resolved]

NARRATIVE: CASE EVENT DATE: 20180701
